FAERS Safety Report 15316141 (Version 3)
Quarter: 2020Q2

REPORT INFORMATION
  Report Type: Report from Study
  Country: US (occurrence: US)
  Receive Date: 20180824
  Receipt Date: 20200511
  Transmission Date: 20200713
  Serious: Yes (Other)
  Sender: FDA-Public Use
  Company Number: US-UCBSA-2018037975

PATIENT
  Age: 42 Year
  Sex: Female
  Weight: 56 kg

DRUGS (12)
  1. BRIVARACETAM [Suspect]
     Active Substance: BRIVARACETAM
     Dosage: 25 MG, 2X/DAY (BID)
     Route: 048
     Dates: start: 20180804, end: 20180811
  2. MEDROXYPROGESTERONE [Concomitant]
     Active Substance: MEDROXYPROGESTERONE
     Indication: CONTRACEPTION
     Dosage: 10 MG, ONCE DAILY (QD)
     Route: 048
     Dates: start: 20140921
  3. LORAZEPAM. [Concomitant]
     Active Substance: LORAZEPAM
     Indication: EPILEPSY
     Dosage: 1 MG, AS NEEDED (PRN)
     Route: 048
     Dates: start: 20140920
  4. BRIVARACETAM [Suspect]
     Active Substance: BRIVARACETAM
     Indication: EPILEPSY
     Dosage: 25 MG, 2X/DAY (BID)
     Route: 048
     Dates: start: 20180721, end: 20180728
  5. LORTAB [Suspect]
     Active Substance: ACETAMINOPHEN\HYDROCODONE BITARTRATE
     Indication: PRODUCT USED FOR UNKNOWN INDICATION
     Dosage: UNK
     Dates: start: 20180810, end: 20180811
  6. BISMUTH SUBSALICYLATE. [Concomitant]
     Active Substance: BISMUTH SUBSALICYLATE
     Indication: DYSPEPSIA
     Dosage: 262 MG, AS NEEDED (PRN)
     Route: 048
  7. DICYCLOMINE [Concomitant]
     Active Substance: DICYCLOMINE HYDROCHLORIDE
     Indication: ABDOMINAL PAIN UPPER
     Dosage: 20 MG, AS NEEDED (PRN)
     Route: 048
     Dates: start: 20180112
  8. IBUPROFEN. [Concomitant]
     Active Substance: IBUPROFEN
     Indication: PAIN
     Dosage: 800 MG, AS NEEDED (PRN)
     Route: 048
     Dates: start: 20140921
  9. TRIAMCINOLONE [Concomitant]
     Active Substance: TRIAMCINOLONE
     Indication: RASH
     Dosage: UNK, ONCE DAILY (QD)
     Route: 061
     Dates: start: 20180724
  10. BRIVARACETAM [Suspect]
     Active Substance: BRIVARACETAM
     Dosage: 50 MG, 2X/DAY (BID)
     Route: 048
     Dates: start: 20180729, end: 20180803
  11. MELATONIN [Concomitant]
     Active Substance: MELATONIN
     Indication: GENERAL PHYSICAL HEALTH DETERIORATION
     Dosage: 5 MG, ONCE DAILY (QD)
     Route: 048
     Dates: start: 20180709
  12. BRIVARACETAM [Suspect]
     Active Substance: BRIVARACETAM
     Dosage: 12.5 MG (SPLITING 25 MG TABLET)
     Route: 048
     Dates: start: 20180812, end: 20180818

REACTIONS (9)
  - Headache [Recovering/Resolving]
  - Vomiting [Unknown]
  - Rash pruritic [Recovered/Resolved]
  - Abdominal pain [Recovered/Resolved]
  - Fall [Recovered/Resolved]
  - Foot fracture [Unknown]
  - Seizure [Unknown]
  - Malaise [Unknown]
  - Intentional product misuse [Unknown]

NARRATIVE: CASE EVENT DATE: 2018
